FAERS Safety Report 17995276 (Version 1)
Quarter: 2020Q3

REPORT INFORMATION
  Report Type: Spontaneous
  Country: JP (occurrence: JP)
  Receive Date: 20200708
  Receipt Date: 20200708
  Transmission Date: 20201103
  Serious: Yes (Hospitalization)
  Sender: FDA-Public Use
  Company Number: JP-EISAI MEDICAL RESEARCH-EC-2020-076880

PATIENT
  Sex: Female

DRUGS (1)
  1. LENVIMA [Suspect]
     Active Substance: LENVATINIB
     Indication: THYROID CANCER
     Route: 048
     Dates: end: 20200604

REACTIONS (3)
  - Haematuria [Recovering/Resolving]
  - Sepsis [Recovered/Resolved]
  - Calculus urinary [Recovering/Resolving]

NARRATIVE: CASE EVENT DATE: 202006
